FAERS Safety Report 8773571 (Version 1)
Quarter: 2012Q4

REPORT INFORMATION
  Report Type: 
  Country: DE (occurrence: DE)
  Receive Date: 20120907
  Receipt Date: 20120907
  Transmission Date: 20130627
  Serious: Yes (Other)
  Sender: FDA-Public Use
  Company Number: DE-GLAXOSMITHKLINE-D0076956A

PATIENT
  Sex: Male

DRUGS (1)
  1. REVOLADE [Suspect]
     Dosage: 25MG Unknown
     Route: 048

REACTIONS (3)
  - Blindness transient [Recovered/Resolved]
  - Visual impairment [Unknown]
  - Dizziness [Unknown]
